FAERS Safety Report 5621527-0 (Version None)
Quarter: 2008Q1

REPORT INFORMATION
  Report Type: 
  Country: None (occurrence: None)
  Receive Date: 20080114
  Receipt Date: 20070604
  Transmission Date: 20080703
  Serious: Yes (Hospitalization, Other)
  Sender: FDA-Public Use
  Company Number: A03200703535

PATIENT
  Age: 66 Year
  Sex: Male
  Weight: 74.83 kg

DRUGS (7)
  1. PLAVIX [Suspect]
     Indication: CEREBROVASCULAR ACCIDENT
     Dosage: 75 MG QD - ORAL
     Route: 048
     Dates: start: 20030101, end: 20060523
  2. PLAVIX [Suspect]
     Indication: DIZZINESS
     Dosage: 75 MG QD - ORAL
     Route: 048
     Dates: start: 20030101, end: 20060523
  3. ACETYLSALICYLIC ACID SRT [Concomitant]
  4. LISINOPRIL [Concomitant]
  5. ATORVASTATIN CALCIUM [Concomitant]
  6. ASCORBIC ACID [Concomitant]
  7. CALCIUM [Concomitant]

REACTIONS (8)
  - DISORIENTATION [None]
  - DIZZINESS [None]
  - FALL [None]
  - GASTRIC ULCER HAEMORRHAGE [None]
  - HYPERHIDROSIS [None]
  - LOSS OF CONSCIOUSNESS [None]
  - TRANSIENT ISCHAEMIC ATTACK [None]
  - VISION BLURRED [None]
